FAERS Safety Report 9344097 (Version 1)
Quarter: 2013Q2

REPORT INFORMATION
  Report Type: Report from Study
  Country: ES (occurrence: ES)
  Receive Date: 20130612
  Receipt Date: 20130612
  Transmission Date: 20140414
  Serious: Yes (Death, Hospitalization)
  Sender: FDA-Public Use
  Company Number: ES-SANOFI-AVENTIS-2013SA058697

PATIENT
  Age: 54 Year
  Sex: Male
  Weight: 45 kg

DRUGS (4)
  1. DOCETAXEL [Suspect]
     Indication: SQUAMOUS CELL CARCINOMA OF HEAD AND NECK
     Dosage: FORM:INFUSION
     Route: 042
     Dates: start: 20100607, end: 20100719
  2. CISPLATIN [Suspect]
     Indication: SQUAMOUS CELL CARCINOMA OF HEAD AND NECK
     Dosage: FORM:INFUSION
     Route: 042
     Dates: start: 20100607, end: 20100819
  3. 5-FU [Suspect]
     Indication: SQUAMOUS CELL CARCINOMA OF HEAD AND NECK
     Dosage: FORM:INFUSION
     Route: 042
     Dates: start: 20100607, end: 20100719
  4. THERAPEUTIC RADIOPHARMACEUTICALS [Concomitant]
     Route: 065
     Dates: start: 20100607, end: 20100819

REACTIONS (1)
  - Intestinal ischaemia [Fatal]
